FAERS Safety Report 15201256 (Version 1)
Quarter: 2018Q3

REPORT INFORMATION
  Report Type: Spontaneous
  Country: US (occurrence: US)
  Receive Date: 20180627
  Receipt Date: 20180627
  Transmission Date: 20181010
  Serious: No
  Sender: FDA-Public Use
  Company Number: None

PATIENT
  Age: 63 Year
  Sex: Female

DRUGS (1)
  1. TYKERB [Suspect]
     Active Substance: LAPATINIB DITOSYLATE
     Dates: start: 20180307, end: 20180627

REACTIONS (3)
  - Alopecia [None]
  - Palmar-plantar erythrodysaesthesia syndrome [None]
  - Skin discolouration [None]

NARRATIVE: CASE EVENT DATE: 20180627
